FAERS Safety Report 6451575-2 (Version None)
Quarter: 2009Q4

REPORT INFORMATION
  Report Type: 
  Country: None (occurrence: None)
  Receive Date: 20091120
  Receipt Date: 20091120
  Transmission Date: 20100525
  Serious: Yes (Hospitalization, Disabling)
  Sender: FDA-Public Use
  Company Number: None

PATIENT
  Weight: 115.2 kg

DRUGS (1)
  1. NOREPINEPHRINE BITARTRATE [Suspect]
     Indication: HYPOTENSION
     Dosage: 8MG/ 250ML OF DSW 3.8ML/HR IV
     Route: 036
     Dates: start: 20091118, end: 20091119

REACTIONS (4)
  - INFUSION SITE DISCOLOURATION [None]
  - INFUSION SITE ERYTHEMA [None]
  - INFUSION SITE EXTRAVASATION [None]
  - INFUSION SITE OEDEMA [None]
